FAERS Safety Report 7469645-9 (Version None)
Quarter: 2011Q2

REPORT INFORMATION
  Report Type: 
  Country: None (occurrence: None)
  Receive Date: 20110510
  Receipt Date: 20110428
  Transmission Date: 20111010
  Serious: Yes (Hospitalization)
  Sender: FDA-Public Use
  Company Number: DK-SANOFI-AVENTIS-2011SA023491

PATIENT
  Age: 65 Year
  Sex: Male
  Weight: 113 kg

DRUGS (6)
  1. FUROSEMIDE [Suspect]
     Dosage: LOW DOSE
     Route: 048
  2. FUROSEMIDE [Suspect]
     Route: 048
  3. SPIRONOLACTONE [Suspect]
     Route: 065
  4. NATURETIN-5 [Suspect]
     Route: 065
  5. METOPROLOL SUCCINATE [Concomitant]
     Route: 065
  6. FUROSEMIDE [Suspect]
     Route: 048

REACTIONS (19)
  - CREATININE RENAL CLEARANCE DECREASED [None]
  - DYSPNOEA [None]
  - EJECTION FRACTION DECREASED [None]
  - ASCITES [None]
  - ABDOMINAL DISTENSION [None]
  - BLOOD CREATININE INCREASED [None]
  - CARDIOMEGALY [None]
  - GENERALISED OEDEMA [None]
  - NORMOCHROMIC NORMOCYTIC ANAEMIA [None]
  - HYPOTENSION [None]
  - CARDIAC DISORDER [None]
  - BLOOD UREA INCREASED [None]
  - PULMONARY CONGESTION [None]
  - RENAL FAILURE ACUTE [None]
  - BLOOD UREA NITROGEN/CREATININE RATIO INCREASED [None]
  - RENAL IMPAIRMENT [None]
  - BLOOD PHOSPHORUS INCREASED [None]
  - WEIGHT INCREASED [None]
  - HEPATIC STEATOSIS [None]
